FAERS Safety Report 8707684 (Version 2)
Quarter: 2013Q2

REPORT INFORMATION
  Report Type: Spontaneous
  Country: US (occurrence: US)
  Receive Date: 20120806
  Receipt Date: 20130521
  Transmission Date: 20140414
  Serious: No
  Sender: FDA-Public Use
  Company Number: US-009507513-1207USA008986

PATIENT
  Age: 12 Year
  Sex: Male

DRUGS (2)
  1. SINGULAIR [Suspect]
     Indication: ASTHMA
     Dosage: 1 DF, QD
     Route: 048
  2. FLOVENT [Concomitant]

REACTIONS (4)
  - Pneumonia [Unknown]
  - Cough [Unknown]
  - Product colour issue [Unknown]
  - Product physical issue [Unknown]
